FAERS Safety Report 4791750-6 (Version None)
Quarter: 2005Q4

REPORT INFORMATION
  Report Type: 
  Country: None (occurrence: None)
  Receive Date: 20051005
  Receipt Date: 20050929
  Transmission Date: 20060501
  Serious: Yes (Other)
  Sender: FDA-Public Use
  Company Number: B0395968A

PATIENT
  Age: 71 Year
  Sex: Male

DRUGS (3)
  1. ZINACEF [Suspect]
     Indication: PNEUMONIA
  2. AZITHROMYCIN [Suspect]
  3. METRONIDAZOLE [Concomitant]

REACTIONS (3)
  - ABDOMINAL PAIN [None]
  - ABDOMINAL TENDERNESS [None]
  - CLOSTRIDIAL INFECTION [None]
